FAERS Safety Report 15475481 (Version 1)
Quarter: 2018Q4

REPORT INFORMATION
  Report Type: Report from Study
  Country: US (occurrence: US)
  Receive Date: 20181008
  Receipt Date: 20181008
  Transmission Date: 20190205
  Serious: Yes (Hospitalization)
  Sender: FDA-Public Use
  Company Number: US-ACTELION-A-NJ2018-171169

PATIENT
  Age: 3 Month
  Sex: Male
  Weight: 3.9 kg

DRUGS (5)
  1. TRACLEER [Suspect]
     Active Substance: BOSENTAN
     Indication: PULMONARY HYPERTENSION
     Dosage: 15.6 MG, QD
     Route: 048
  2. NITRIC OXIDE. [Concomitant]
     Active Substance: NITRIC OXIDE
  3. SILDENAFIL. [Concomitant]
     Active Substance: SILDENAFIL
     Dosage: 4 MG, TID
  4. TRACLEER [Suspect]
     Active Substance: BOSENTAN
     Dosage: 16 MG, BID
     Route: 048
     Dates: start: 201804
  5. MILRINONE [Concomitant]
     Active Substance: MILRINONE
     Dosage: UNK

REACTIONS (4)
  - Cardiac failure congestive [Unknown]
  - Off label use [Unknown]
  - No adverse event [Unknown]
  - Hospitalisation [Unknown]
